FAERS Safety Report 7204827-2 (Version None)
Quarter: 2010Q4

REPORT INFORMATION
  Report Type: 
  Country: None (occurrence: None)
  Receive Date: 20101230
  Receipt Date: 20101221
  Transmission Date: 20110411
  Serious: Yes (Death, Other)
  Sender: FDA-Public Use
  Company Number: US-WATSON-2010-16319

PATIENT
  Age: 48 Year
  Sex: Male

DRUGS (6)
  1. BUSPIRONE HYDROCHLORIDE [Suspect]
     Indication: ANXIETY
     Dosage: 1TABLET, TID
     Route: 048
     Dates: end: 20101101
  2. BUSPIRONE HYDROCHLORIDE [Suspect]
     Dosage: 1TABLET, TID
     Route: 048
     Dates: start: 20091022
  3. MIRTAZAPINE [Suspect]
     Indication: DEPRESSION
     Dosage: 15 MG, QHS
     Route: 048
     Dates: start: 20091022, end: 20101101
  4. GABAPENTIN [Suspect]
     Indication: PAIN
     Dosage: 1 TID
     Route: 048
     Dates: start: 20100925, end: 20101101
  5. TRAZODONE [Suspect]
     Indication: DEPRESSION
     Dosage: 50 MG QHS
     Route: 048
     Dates: start: 20100925, end: 20101119
  6. VERAPAMIL [Suspect]
     Indication: HYPERTENSION
     Dosage: 180 MG, UNK
     Route: 065

REACTIONS (8)
  - ABDOMINAL DISCOMFORT [None]
  - ANXIETY [None]
  - CHEST PAIN [None]
  - COMPLETED SUICIDE [None]
  - DEPRESSION [None]
  - DYSPEPSIA [None]
  - FEAR OF WEIGHT GAIN [None]
  - HEADACHE [None]
